FAERS Safety Report 9403872 (Version 3)
Quarter: 2014Q1

REPORT INFORMATION
  Report Type: Report from Study
  Country: GB (occurrence: GB)
  Receive Date: 20130717
  Receipt Date: 20140129
  Transmission Date: 20141002
  Serious: Yes (Hospitalization)
  Sender: FDA-Public Use
  Company Number: GB-ROCHE-1119018

PATIENT
  Age: 42 Year
  Sex: Female
  Weight: 63.2 kg

DRUGS (9)
  1. BLINDED PERTUZUMAB [Suspect]
     Indication: BREAST CANCER
     Dosage: DATE OF LAST DOSE PRIOR TO SAE: 24/AUG/2012
     Route: 042
     Dates: start: 20120824
  2. TRASTUZUMAB [Suspect]
     Indication: BREAST CANCER
     Dosage: DATE OF LAST DOSE PRIOR TO SAE: 24/AUG/2012
     Route: 042
     Dates: start: 20120824
  3. DOCETAXEL [Suspect]
     Indication: BREAST CANCER
     Dosage: DATE OF LAST DOSE PRIOR TO SAE: 24/AUG/2012
     Route: 042
     Dates: start: 20120824
  4. DIFFLAM ORAL RINSE [Concomitant]
     Route: 065
     Dates: start: 20120901
  5. CHLORPHENAMINE [Concomitant]
     Route: 065
     Dates: start: 20120901
  6. PARACETAMOL [Concomitant]
     Route: 065
     Dates: start: 20120901
  7. CODEINE PHOSPHATE [Concomitant]
     Route: 065
     Dates: start: 20120901
  8. IBUPROFEN [Concomitant]
     Route: 065
     Dates: start: 20120901
  9. METOCLOPRAMIDE [Concomitant]
     Route: 065
     Dates: start: 20120901

REACTIONS (2)
  - Neutropenic sepsis [Recovered/Resolved]
  - Febrile neutropenia [Recovered/Resolved]
